FAERS Safety Report 21473909 (Version 2)
Quarter: 2022Q4

REPORT INFORMATION
  Report Type: Spontaneous
  Country: JP (occurrence: JP)
  Receive Date: 20221018
  Receipt Date: 20221019
  Transmission Date: 20230112
  Serious: Yes (Hospitalization)
  Sender: FDA-Public Use
  Company Number: JP-ALLERGAN-2233884US

PATIENT
  Sex: Male

DRUGS (1)
  1. GATIFLOXACIN [Suspect]
     Active Substance: GATIFLOXACIN
     Indication: Eye inflammation
     Dosage: UNK
     Route: 047
     Dates: start: 2022

REACTIONS (1)
  - Dizziness [Unknown]

NARRATIVE: CASE EVENT DATE: 20221002
